FAERS Safety Report 6416366-7 (Version None)
Quarter: 2009Q4

REPORT INFORMATION
  Report Type: 
  Country: None (occurrence: None)
  Receive Date: 20091023
  Receipt Date: 20091007
  Transmission Date: 20100525
  Serious: Yes (Other)
  Sender: FDA-Public Use
  Company Number: JPI-P-008837

PATIENT
  Age: 12 Year
  Sex: Male

DRUGS (3)
  1. FLUVOXAMINE MALEATE [Suspect]
     Indication: AUTISM SPECTRUM DISORDER
     Dosage: 50 MG (50 MG, 1 IN 1 D), ORAL
     Route: 048
     Dates: start: 20090926, end: 20090930
  2. METHYLPHENIDATE HCL [Suspect]
     Indication: DRUG USE FOR UNKNOWN INDICATION
     Dosage: (18 MG, 1 D), ORAL
     Route: 048
     Dates: start: 20090926, end: 20090930
  3. GLORIAMIN [Concomitant]

REACTIONS (2)
  - HEADACHE [None]
  - RASH GENERALISED [None]
